FAERS Safety Report 4428816-6 (Version None)
Quarter: 2004Q3

REPORT INFORMATION
  Report Type: 
  Country: None (occurrence: None)
  Receive Date: 20040818
  Receipt Date: 20040817
  Transmission Date: 20050211
  Serious: Yes (Other)
  Sender: FDA-Public Use
  Company Number: US-GLAXOSMITHKLINE-A0522467A

PATIENT
  Age: 42 Year
  Sex: Female

DRUGS (2)
  1. LAMICTAL [Suspect]
     Indication: BIPOLAR DISORDER
     Dosage: 200MG PER DAY
     Route: 048
     Dates: start: 20040501, end: 20040816
  2. KLONOPIN [Concomitant]

REACTIONS (4)
  - ACQUIRED NIGHT BLINDNESS [None]
  - ALOPECIA [None]
  - SKIN DISCOLOURATION [None]
  - VISUAL ACUITY REDUCED [None]
